FAERS Safety Report 5982153-7 (Version None)
Quarter: 2008Q4

REPORT INFORMATION
  Report Type: 
  Country: None (occurrence: None)
  Receive Date: 20081203
  Receipt Date: 20081106
  Transmission Date: 20090506
  Serious: No
  Sender: FDA-Public Use
  Company Number: ADE# 08-188

PATIENT
  Age: 43 Year
  Sex: Male
  Weight: 92.9874 kg

DRUGS (3)
  1. PANTOPRAZOLE SODIUM [Suspect]
     Indication: GASTRITIS
     Dosage: ONE TABLET DAILY
     Route: 048
     Dates: start: 20081101
  2. CLARITIN-D 24 HOUR [Concomitant]
  3. NASONEX [Concomitant]

REACTIONS (5)
  - DISCOMFORT [None]
  - DISEASE RECURRENCE [None]
  - DYSPEPSIA [None]
  - NO THERAPEUTIC RESPONSE [None]
  - PRODUCT QUALITY ISSUE [None]
